FAERS Safety Report 4357959-0 (Version None)
Quarter: 2004Q2

REPORT INFORMATION
  Report Type: 
  Country: None (occurrence: None)
  Receive Date: 20040513
  Receipt Date: 20040513
  Transmission Date: 20050107
  Serious: Yes (Disabling)
  Sender: FDA-Public Use
  Company Number: None

PATIENT
  Age: 30 Year
  Sex: Male
  Weight: 72.5755 kg

DRUGS (1)
  1. LEVAQUIN [Suspect]
     Indication: VIRAL INFECTION
     Dosage: 1 1 ORAL
     Route: 048
     Dates: start: 20040508, end: 20040511

REACTIONS (5)
  - FATIGUE [None]
  - IMPAIRED WORK ABILITY [None]
  - MOOD ALTERED [None]
  - MYALGIA [None]
  - NAUSEA [None]
